FAERS Safety Report 8188253-8 (Version None)
Quarter: 2012Q1

REPORT INFORMATION
  Report Type: 
  Country: None (occurrence: None)
  Receive Date: 20120221
  Receipt Date: 20110512
  Transmission Date: 20120608
  Serious: Yes (Hospitalization)
  Sender: FDA-Public Use
  Company Number: PHHY2011US40753

PATIENT
  Age: 12 Year
  Sex: Male
  Weight: 23.1 kg

DRUGS (1)
  1. TOBI [Suspect]
     Dosage: 300 MG, BID (28 DAYS ON AND 28 DAYS OFF), INHALATION
     Route: 055
     Dates: start: 20101001

REACTIONS (1)
  - PNEUMONIA [None]
